FAERS Safety Report 9937331 (Version 2)
Quarter: 2014Q1

REPORT INFORMATION
  Report Type: Report from Study
  Country: US (occurrence: US)
  Receive Date: 20140302
  Receipt Date: 20140320
  Transmission Date: 20141002
  Serious: No
  Sender: FDA-Public Use
  Company Number: US-ROCHE-1355192

PATIENT
  Sex: Male

DRUGS (7)
  1. PEGASYS [Suspect]
     Indication: CHRONIC HEPATITIS C
     Route: 058
     Dates: start: 20140222
  2. PEGASYS [Suspect]
     Route: 065
     Dates: start: 2005
  3. RIBAVIRIN [Suspect]
     Indication: CHRONIC HEPATITIS C
     Dosage: DIVIDED DOSES, 400/400
     Route: 065
     Dates: start: 20140222
  4. RIBAVIRIN [Suspect]
     Route: 065
     Dates: start: 2005
  5. SOVALDI [Suspect]
     Indication: CHRONIC HEPATITIS C
     Route: 065
     Dates: start: 20140222
  6. REMERON [Concomitant]
  7. VIIBRYD [Concomitant]

REACTIONS (11)
  - Pyrexia [Unknown]
  - Muscle tightness [Unknown]
  - Myalgia [Unknown]
  - Pain [Unknown]
  - Chills [Unknown]
  - Depression [Unknown]
  - Decreased appetite [Unknown]
  - Fatigue [Unknown]
  - Malaise [Unknown]
  - White blood cell count decreased [Unknown]
  - Red blood cell count decreased [Unknown]
